FAERS Safety Report 8950856 (Version 2)
Quarter: 2012Q4

REPORT INFORMATION
  Report Type: Spontaneous
  Country: FR (occurrence: None)
  Receive Date: 20121128
  Receipt Date: 20121226
  Transmission Date: 20130627
  Serious: Yes (Death, Hospitalization)
  Sender: FDA-Public Use
  Company Number: 2012000250

PATIENT
  Age: 62 Year
  Sex: Female

DRUGS (5)
  1. ACEON (PERINDOPRIL ERBUMINE) TABLET [Suspect]
     Indication: PRODUCT USED FOR UNKNOWN INDICATION
     Route: 048
     Dates: start: 2009
  2. RUXOLITINIB [Suspect]
     Indication: SPLENOMEGALY
     Route: 048
     Dates: start: 20120103, end: 20121022
  3. FLECAINE [Suspect]
     Indication: PRODUCT USED FOR UNKNOWN INDICATION
     Dates: start: 2009
  4. TEMERIT [Suspect]
     Indication: PRODUCT USED FOR UNKNOWN INDICATION
     Route: 048
     Dates: start: 2009
  5. KARDEGIC [Suspect]
     Indication: PRODUCT USED FOR UNKNOWN INDICATION
     Route: 048
     Dates: start: 2011

REACTIONS (11)
  - Pancreatitis necrotising [None]
  - Multi-organ failure [None]
  - Shock [None]
  - Respiratory failure [None]
  - Hepatocellular injury [None]
  - Splenomegaly [None]
  - Blood pressure diastolic decreased [None]
  - Blood glucose increased [None]
  - Renal failure acute [None]
  - Encephalopathy [None]
  - Haemodialysis [None]
